FAERS Safety Report 23604523 (Version 1)
Quarter: 2024Q1

REPORT INFORMATION
  Report Type: Spontaneous
  Country: CN (occurrence: CN)
  Receive Date: 20240307
  Receipt Date: 20240307
  Transmission Date: 20240410
  Serious: Yes (Hospitalization, Other)
  Sender: FDA-Public Use
  Company Number: None

PATIENT
  Age: 18 Year
  Sex: Male
  Weight: 67 kg

DRUGS (8)
  1. CYCLOPHOSPHAMIDE [Suspect]
     Active Substance: CYCLOPHOSPHAMIDE
     Indication: Acute leukaemia
     Dosage: 700 MG, ONE TIME IN ONE DAY, DILUTED WITH 500 ML OF SODIUM CHLORIDE (NS)
     Route: 041
     Dates: start: 20240123, end: 20240125
  2. SODIUM CHLORIDE [Suspect]
     Active Substance: SODIUM CHLORIDE
     Indication: Medication dilution
     Dosage: 100 ML, ONE TIME IN ONE DAY, USED TO DILUTE VINCRISTINE SULFATE 2 MG
     Route: 041
     Dates: start: 20240122, end: 20240127
  3. SODIUM CHLORIDE [Suspect]
     Active Substance: SODIUM CHLORIDE
     Dosage: 1100 ML, ONE TIME IN ONE DAY, USED TO DILUTE METHOTREXATE 7 G
     Route: 041
     Dates: start: 20240122, end: 20240123
  4. SODIUM CHLORIDE [Suspect]
     Active Substance: SODIUM CHLORIDE
     Dosage: 500 ML, ONE TIME IN ONE DAY, USED TO DILUTE CYCLOPHOSPHAMIDE 700 MG
     Route: 041
     Dates: start: 20240123, end: 20240125
  5. DEXTROSE [Suspect]
     Active Substance: DEXTROSE\DEXTROSE MONOHYDRATE
     Indication: Medication dilution
     Dosage: 5% 1000 ML, ONE TIME IN ONE DAY, USED TO DILUTE 6 G CYTARABINE
     Route: 041
     Dates: start: 20240126, end: 20240127
  6. VINCRISTINE SULFATE [Suspect]
     Active Substance: VINCRISTINE SULFATE
     Indication: Acute leukaemia
     Dosage: 2 MG, ONE TIME IN ONE DAY, DILUTED WITH 100 ML OF SODIUM CHLORIDE
     Route: 041
     Dates: start: 20240122, end: 20240127
  7. CYTARABINE [Suspect]
     Active Substance: CYTARABINE
     Indication: Acute leukaemia
     Dosage: 6 G, ONE TIME IN ONE DAY, DILUTED WITH 1000 ML OF 5% GLUCOSE
     Route: 041
     Dates: start: 20240126, end: 20240127
  8. METHOTREXATE [Suspect]
     Active Substance: METHOTREXATE
     Indication: Acute leukaemia
     Dosage: 7 G, ONE TIME IN ONE DAY, DILUTED WITH 1100 ML OF SODIUM CHLORIDE
     Route: 041
     Dates: start: 20240122, end: 20240123

REACTIONS (1)
  - Myelosuppression [Recovering/Resolving]

NARRATIVE: CASE EVENT DATE: 20240128
